FAERS Safety Report 8007396-2 (Version None)
Quarter: 2011Q4

REPORT INFORMATION
  Report Type: 
  Country: None (occurrence: None)
  Receive Date: 20111227
  Receipt Date: 20111221
  Transmission Date: 20120403
  Serious: Yes (Life-Threatening, Hospitalization, Other)
  Sender: FDA-Public Use
  Company Number: JP-PFIZER INC-2011301466

PATIENT
  Age: 92 Year
  Sex: Female
  Weight: 34.9 kg

DRUGS (7)
  1. LIVALO [Concomitant]
     Indication: LIPIDS ABNORMAL
     Dosage: 1 DF, 1X/DAY
     Route: 048
  2. LOXONIN [Concomitant]
     Route: 048
  3. NORVASC [Concomitant]
     Indication: HYPERTENSION
     Dosage: 5 MG, 1X/DAY
     Route: 048
     Dates: start: 20080129
  4. ACEMAIL [Concomitant]
     Dosage: 1 DF, 1X/DAY
     Route: 048
  5. NIZATIDINE [Concomitant]
     Dosage: 1 DF, 2X/DAY
     Route: 048
  6. EPLERENONE [Suspect]
     Indication: HYPERTENSION
     Dosage: 50 MG/DAY
     Route: 048
     Dates: start: 20080129, end: 20111122
  7. VITAMEDIN CAPSULE [Concomitant]
     Dosage: 1 DF, 1X/DAY
     Route: 048

REACTIONS (3)
  - CIRCULATORY COLLAPSE [None]
  - BRADYCARDIA [None]
  - HYPERKALAEMIA [None]
